FAERS Safety Report 6522953-8 (Version None)
Quarter: 2009Q4

REPORT INFORMATION
  Report Type: 
  Country: None (occurrence: None)
  Receive Date: 20091230
  Receipt Date: 20091208
  Transmission Date: 20100525
  Serious: Yes (Hospitalization)
  Sender: FDA-Public Use
  Company Number: SK-GENENTECH-296228

PATIENT
  Sex: Male

DRUGS (2)
  1. RANIBIZUMAB [Suspect]
     Indication: DRUG USE FOR UNKNOWN INDICATION
     Dosage: UNK
     Route: 037
     Dates: start: 20091005
  2. RANIBIZUMAB [Suspect]
     Dosage: UNK
     Route: 037
     Dates: start: 20091109

REACTIONS (1)
  - COLON NEOPLASM [None]
